FAERS Safety Report 15905503 (Version 1)
Quarter: 2019Q1

REPORT INFORMATION
  Report Type: Report from Study
  Country: JP (occurrence: JP)
  Receive Date: 20190204
  Receipt Date: 20190204
  Transmission Date: 20190417
  Serious: Yes (Hospitalization, Other)
  Sender: FDA-Public Use
  Company Number: JP-ACTELION-A-CH2017-163196

PATIENT
  Age: 49 Year
  Sex: Male
  Weight: 58.4 kg

DRUGS (14)
  1. EPOPROSTENOL ACT [Suspect]
     Active Substance: EPOPROSTENOL
     Dosage: 53-121 NG/KG, PER MIN
     Route: 042
  2. EPOPROSTENOL ACT [Suspect]
     Active Substance: EPOPROSTENOL
     Dosage: 164 NG/KG, PER MIN
     Route: 042
  3. EPOPROSTENOL ACT [Suspect]
     Active Substance: EPOPROSTENOL
     Dosage: 167.3 NG/KG, PER MIN
     Route: 042
  4. PARIET [Concomitant]
     Active Substance: RABEPRAZOLE SODIUM
  5. EPOPROSTENOL ACT [Suspect]
     Active Substance: EPOPROSTENOL
     Indication: PULMONARY ARTERIAL HYPERTENSION
     Dosage: 1-53 NG/KG, PER MIN
     Route: 042
     Dates: start: 20160908
  6. ADEMPAS [Concomitant]
     Active Substance: RIOCIGUAT
  7. LANSOPRAZOLE. [Concomitant]
     Active Substance: LANSOPRAZOLE
  8. DIART [Concomitant]
     Active Substance: AZOSEMIDE
  9. MIYA-BM [Concomitant]
     Active Substance: CLOSTRIDIUM BUTYRICUM SPORES STRAIN M-55
  10. OXYGEN. [Concomitant]
     Active Substance: OXYGEN
  11. OPSUMIT [Suspect]
     Active Substance: MACITENTAN
     Indication: PULMONARY ARTERIAL HYPERTENSION
     Dosage: 10 MG, QD
     Route: 048
     Dates: start: 20160826
  12. LOPERAMIDE [Concomitant]
     Active Substance: LOPERAMIDE
  13. ALBUMIN TANNATE [Concomitant]
     Active Substance: ALBUMIN BOVINE\TANNIC ACID
  14. SELARA [Concomitant]
     Active Substance: EPLERENONE

REACTIONS (11)
  - Dyspnoea [Recovering/Resolving]
  - Right ventricular failure [Recovering/Resolving]
  - Erythema [Recovered/Resolved]
  - Pain in extremity [Recovering/Resolving]
  - Brain natriuretic peptide increased [Recovering/Resolving]
  - Tenderness [Recovered/Resolved]
  - Platelet count decreased [Recovering/Resolving]
  - Orthopnoea [Recovering/Resolving]
  - Cardiothoracic ratio increased [Recovering/Resolving]
  - Device related infection [Recovered/Resolved]
  - Catheter management [Unknown]

NARRATIVE: CASE EVENT DATE: 20170622
